FAERS Safety Report 16731779 (Version 1)
Quarter: 2019Q3

REPORT INFORMATION
  Report Type: Report from Study
  Country: CA (occurrence: CA)
  Receive Date: 20190822
  Receipt Date: 20190822
  Transmission Date: 20191005
  Serious: Yes (Other)
  Sender: FDA-Public Use
  Company Number: CA-JNJFOC-20181225709

PATIENT
  Age: 34 Year
  Sex: Female
  Weight: 71.1 kg

DRUGS (1)
  1. REMICADE [Suspect]
     Active Substance: INFLIXIMAB
     Indication: COLITIS ULCERATIVE
     Route: 042
     Dates: start: 20130501

REACTIONS (6)
  - Constipation [Unknown]
  - Fatigue [Unknown]
  - Haematochezia [Unknown]
  - Oral herpes [Unknown]
  - Exposure during pregnancy [Recovered/Resolved]
  - Abdominal pain [Unknown]

NARRATIVE: CASE EVENT DATE: 2018
